FAERS Safety Report 20434484 (Version 9)
Quarter: 2022Q2

REPORT INFORMATION
  Report Type: Report from Study
  Country: US (occurrence: US)
  Receive Date: 20220206
  Receipt Date: 20220422
  Transmission Date: 20220721
  Serious: Yes (Hospitalization)
  Sender: FDA-Public Use
  Company Number: NVSC2022US025279

PATIENT
  Sex: Male

DRUGS (1)
  1. ENTRESTO [Suspect]
     Active Substance: SACUBITRIL\VALSARTAN
     Indication: Product used for unknown indication
     Dosage: 50 MG (24/26 MG), BID
     Route: 048
     Dates: start: 20220129

REACTIONS (14)
  - COVID-19 [Recovering/Resolving]
  - Fatigue [Recovering/Resolving]
  - Cough [Recovering/Resolving]
  - Illness [Recovering/Resolving]
  - Norovirus infection [Unknown]
  - Dehydration [Unknown]
  - Diarrhoea [Unknown]
  - Blood potassium decreased [Recovering/Resolving]
  - Peripheral swelling [Unknown]
  - Decreased appetite [Unknown]
  - Headache [Unknown]
  - Hypotension [Unknown]
  - Feeling abnormal [Unknown]
  - Somnolence [Unknown]
